FAERS Safety Report 6653852-9 (Version None)
Quarter: 2010Q1

REPORT INFORMATION
  Report Type: 
  Country: None (occurrence: None)
  Receive Date: 20100326
  Receipt Date: 20100319
  Transmission Date: 20100710
  Serious: Yes (Hospitalization)
  Sender: FDA-Public Use
  Company Number: B0642955A

PATIENT
  Sex: Female
  Weight: 56 kg

DRUGS (3)
  1. LAPATINIB [Suspect]
     Indication: BREAST CANCER
     Dosage: 1000MG PER DAY
     Route: 048
     Dates: start: 20100304
  2. EPIRUBICIN [Suspect]
     Indication: BREAST CANCER
     Dosage: 145MG EVERY 3 WEEKS
     Route: 042
     Dates: start: 20100304
  3. CYCLOPHOSPHAMIDE [Suspect]
     Indication: BREAST CANCER
     Dosage: 970MG EVERY 3 WEEKS
     Route: 042
     Dates: start: 20100304

REACTIONS (1)
  - FEBRILE NEUTROPENIA [None]
